FAERS Safety Report 7367046-5 (Version None)
Quarter: 2011Q1

REPORT INFORMATION
  Report Type: 
  Country: None (occurrence: None)
  Receive Date: 20110311
  Receipt Date: 20110225
  Transmission Date: 20110831
  Serious: Yes (Other)
  Sender: FDA-Public Use
  Company Number: 2011MA001862

PATIENT
  Age: 37 Year
  Sex: Male

DRUGS (1)
  1. VENLAFAXINE HYDROCHLORIDE [Suspect]
     Indication: POST-TRAUMATIC STRESS DISORDER
     Dosage: 300 MG;QD;PO
     Route: 048

REACTIONS (7)
  - POLLAKIURIA [None]
  - MICTURITION URGENCY [None]
  - URINARY RETENTION [None]
  - MOOD ALTERED [None]
  - CONDITION AGGRAVATED [None]
  - NEUROLOGICAL SYMPTOM [None]
  - BLADDER DILATATION [None]
